FAERS Safety Report 20809045 (Version 6)
Quarter: 2022Q3

REPORT INFORMATION
  Report Type: Spontaneous
  Country: CO (occurrence: CO)
  Receive Date: 20220510
  Receipt Date: 20220902
  Transmission Date: 20221027
  Serious: Yes (Hospitalization, Other)
  Sender: FDA-Public Use
  Company Number: CO-PFIZER INC-202200644258

PATIENT
  Age: 60 Year
  Sex: Female

DRUGS (2)
  1. ENBREL [Suspect]
     Active Substance: ETANERCEPT
     Indication: Rheumatoid arthritis
     Dosage: 50 MG, UNSPECIFIED FREQUENCY
     Route: 058
     Dates: start: 2021, end: 20220807
  2. ENBREL [Suspect]
     Active Substance: ETANERCEPT
     Dosage: 50 MG, WEEKLY (EACH 8 DAYS)
     Route: 058

REACTIONS (9)
  - Foot deformity [Recovering/Resolving]
  - Infected bunion [Unknown]
  - Product dose omission issue [Unknown]
  - Product dispensing issue [Unknown]
  - Condition aggravated [Recovering/Resolving]
  - Joint swelling [Recovered/Resolved]
  - Pain in extremity [Not Recovered/Not Resolved]
  - Arthralgia [Not Recovered/Not Resolved]
  - Pain [Unknown]

NARRATIVE: CASE EVENT DATE: 20220423
